FAERS Safety Report 12425364 (Version 2)
Quarter: 2016Q2

REPORT INFORMATION
  Report Type: Report from Study
  Country: CO (occurrence: CO)
  Receive Date: 20160601
  Receipt Date: 20160616
  Transmission Date: 20160815
  Serious: Yes (Hospitalization)
  Sender: FDA-Public Use
  Company Number: CO-EMD SERONO-8086721

PATIENT
  Age: 10 Year
  Sex: Female
  Weight: 40 kg

DRUGS (2)
  1. SAIZEN [Suspect]
     Active Substance: SOMATROPIN
     Dates: start: 20160602
  2. SAIZEN [Suspect]
     Active Substance: SOMATROPIN
     Indication: GROWTH HORMONE DEFICIENCY
     Dates: start: 20160310, end: 20160322

REACTIONS (2)
  - Intracranial pressure increased [Recovered/Resolved]
  - Secondary hypertension [Recovered/Resolved]

NARRATIVE: CASE EVENT DATE: 20160316
